FAERS Safety Report 14002600 (Version 1)
Quarter: 2017Q3

REPORT INFORMATION
  Report Type: Spontaneous
  Country: DE (occurrence: DE)
  Receive Date: 20170922
  Receipt Date: 20170922
  Transmission Date: 20171128
  Serious: Yes (Congenital Anomaly)
  Sender: FDA-Public Use
  Company Number: DE-SUN PHARMACEUTICAL INDUSTRIES LTD-2017RR-150300

PATIENT
  Age: 1 Day
  Sex: Male
  Weight: 3.44 kg

DRUGS (4)
  1. PARACETAMOL/CAFFEINE [Concomitant]
     Indication: MIGRAINE
     Dosage: 50 MG, DAILY/ 1000 MG, DAILY, IF REQUIRED OCCASIONALLY
     Route: 064
  2. SERTRALINE [Suspect]
     Active Substance: SERTRALINE HYDROCHLORIDE
     Indication: DEPRESSION
     Dosage: 200 MG, DAILY, DOSAGE REDUCTION TO 150, LATER TO 100 MG/D
     Route: 064
     Dates: start: 20151228, end: 20160929
  3. FOLSAURE [Concomitant]
     Active Substance: FOLIC ACID
     Indication: PROPHYLAXIS OF NEURAL TUBE DEFECT
     Dosage: 0.8 MG, DAILY, 0-15.4 GESTATIONAL WEEK
     Route: 064
  4. MAXALT 10 MG [Concomitant]
     Indication: MIGRAINE
     Dosage: 10 MG, DAILY, IF REQUIRED OCCASIONALLY
     Route: 064

REACTIONS (1)
  - Hypospadias [Not Recovered/Not Resolved]

NARRATIVE: CASE EVENT DATE: 20160929
